FAERS Safety Report 11911306 (Version 3)
Quarter: 2016Q1

REPORT INFORMATION
  Report Type: Spontaneous
  Country: DE (occurrence: DE)
  Receive Date: 20160112
  Receipt Date: 20160317
  Transmission Date: 20160526
  Serious: Yes (Hospitalization, Other)
  Sender: FDA-Public Use
  Company Number: DE-BAYER-2016-004172

PATIENT
  Age: 43 Year
  Sex: Female
  Weight: 75 kg

DRUGS (2)
  1. JAYDESS [Suspect]
     Active Substance: LEVONORGESTREL
     Indication: CONTRACEPTION
     Dosage: 14 MCG/24HR, CONT
     Route: 015
     Dates: start: 20151222, end: 20151230
  2. IBUPROFEN. [Concomitant]
     Active Substance: IBUPROFEN
     Dosage: 600 MG, ONCE
     Dates: start: 20151222, end: 20151222

REACTIONS (8)
  - Concussion [Recovered/Resolved]
  - Dizziness [Recovered/Resolved]
  - Device dislocation [Recovered/Resolved]
  - Abdominal pain [Recovered/Resolved]
  - Vaginal haemorrhage [Recovered/Resolved]
  - Device issue [Recovered/Resolved]
  - Fall [Recovered/Resolved]
  - Device difficult to use [None]

NARRATIVE: CASE EVENT DATE: 201512
